FAERS Safety Report 15572612 (Version 5)
Quarter: 2019Q1

REPORT INFORMATION
  Report Type: Spontaneous
  Country: JP (occurrence: JP)
  Receive Date: 20181031
  Receipt Date: 20190107
  Transmission Date: 20190417
  Serious: Yes (Hospitalization)
  Sender: FDA-Public Use
  Company Number: PHJP2018JP018541

PATIENT
  Age: 63 Year
  Sex: Female

DRUGS (4)
  1. HEPARINOID [Concomitant]
     Active Substance: CHONDROITIN SULFATE (BOVINE)
     Indication: PSORIASIS
     Dosage: UNK
     Route: 061
  2. COSENTYX [Suspect]
     Active Substance: SECUKINUMAB
     Indication: PSORIASIS
     Dosage: 150 MG, 4W
     Route: 058
     Dates: start: 20180816, end: 20181011
  3. MYALONE [Concomitant]
     Indication: PSORIASIS
     Dosage: UNK
     Route: 061
  4. ALLELOCK [Concomitant]
     Active Substance: OLOPATADINE HYDROCHLORIDE
     Indication: PSORIASIS
     Dosage: 5 MG, UNK
     Route: 048

REACTIONS (6)
  - Cellulitis [Recovered/Resolved]
  - Aspartate aminotransferase increased [Recovering/Resolving]
  - Sepsis [Recovered/Resolved]
  - Necrotising fasciitis [Recovered/Resolved]
  - Streptococcal infection [Unknown]
  - C-reactive protein increased [Recovering/Resolving]

NARRATIVE: CASE EVENT DATE: 20181025
